FAERS Safety Report 6134392-2 (Version None)
Quarter: 2009Q1

REPORT INFORMATION
  Report Type: 
  Country: None (occurrence: None)
  Receive Date: 20090327
  Receipt Date: 20090319
  Transmission Date: 20090719
  Serious: Yes (Hospitalization)
  Sender: FDA-Public Use
  Company Number: US-JNJFOC-20090200468

PATIENT
  Sex: Female
  Weight: 77.11 kg

DRUGS (9)
  1. DURAGESIC-100 [Suspect]
     Route: 062
  2. DURAGESIC-100 [Suspect]
     Indication: PAIN IN EXTREMITY
     Route: 062
  3. DURAGESIC-100 [Suspect]
     Indication: KNEE OPERATION
     Dosage: 100 MCG 2 EVERY 72 HOURS AND 50 MCG ONE EVERY 72 HOURS
     Route: 062
  4. FENTANYL TRANSDERMAL SYSTEM [Suspect]
     Indication: PAIN IN EXTREMITY
     Dosage: TWO 100UG/HR AND ONE 50UG/HR
     Route: 062
  5. BONIVA [Suspect]
     Indication: RESORPTION BONE INCREASED
     Route: 048
  6. MORPHINE [Suspect]
     Indication: PAIN
     Route: 065
  7. PROZAC [Concomitant]
     Indication: DEPRESSION
     Route: 048
  8. PROZAC [Concomitant]
     Indication: NERVOUSNESS
     Route: 048
  9. WARFARIN [Concomitant]
     Indication: THROMBOSIS
     Route: 048

REACTIONS (7)
  - BONE DISORDER [None]
  - HEADACHE [None]
  - HYPERTENSION [None]
  - ILEUS [None]
  - INFECTION [None]
  - OVARIAN CYST [None]
  - PAIN [None]
